FAERS Safety Report 6607642-3 (Version None)
Quarter: 2010Q1

REPORT INFORMATION
  Report Type: 
  Country: None (occurrence: None)
  Receive Date: 20100212
  Receipt Date: 20100105
  Transmission Date: 20100710
  Serious: No
  Sender: FDA-Public Use
  Company Number: 1000011142

PATIENT
  Age: 27 Year
  Sex: Female
  Weight: 106.5953 kg

DRUGS (6)
  1. SAVELLA [Suspect]
     Indication: FIBROMYALGIA
     Dosage: 100 MG (50 MG, 2 IN 1 D), ORAL
     Route: 048
     Dates: start: 20090601, end: 20090731
  2. SAVELLA [Suspect]
     Indication: FIBROMYALGIA
     Dosage: ORAL
     Route: 048
     Dates: start: 20090801, end: 20090801
  3. ACIPHEX [Concomitant]
  4. FLEXERIL [Concomitant]
  5. VICODIN ES [Concomitant]
  6. ZOFRAN [Concomitant]

REACTIONS (9)
  - BLOOD PRESSURE DECREASED [None]
  - CONSTIPATION [None]
  - FATIGUE [None]
  - FIBROMYALGIA [None]
  - HEADACHE [None]
  - NAUSEA [None]
  - PAIN [None]
  - PULSE ABNORMAL [None]
  - VOMITING [None]
